FAERS Safety Report 15776254 (Version 1)
Quarter: 2018Q4

REPORT INFORMATION
  Report Type: Spontaneous
  Country: AF (occurrence: AF)
  Receive Date: 20181228
  Receipt Date: 20181228
  Transmission Date: 20190205
  Serious: Yes (Hospitalization)
  Sender: FDA-Public Use
  Company Number: None

PATIENT
  Age: 35 Year
  Sex: Female
  Weight: 54 kg

DRUGS (1)
  1. ERYTHROMYCIN. [Suspect]
     Active Substance: ERYTHROMYCIN
     Indication: CHALAZION
     Dosage: ?          QUANTITY:1 TABLET(S);?
     Route: 048
     Dates: start: 20170815, end: 20170817

REACTIONS (5)
  - Vertigo [None]
  - Chest pain [None]
  - Impaired work ability [None]
  - Abdominal pain upper [None]
  - Palpitations [None]

NARRATIVE: CASE EVENT DATE: 20180907
